FAERS Safety Report 6202712-6 (Version None)
Quarter: 2009Q2

REPORT INFORMATION
  Report Type: 
  Country: None (occurrence: None)
  Receive Date: 20090526
  Receipt Date: 20090518
  Transmission Date: 20091009
  Serious: Yes (Other)
  Sender: FDA-Public Use
  Company Number: PHHY2009BR19592

PATIENT
  Age: 68 Year
  Sex: Male

DRUGS (8)
  1. DIOVAN [Suspect]
     Indication: BLOOD PRESSURE MANAGEMENT
     Dosage: 320 MG, QD MORNING
     Route: 048
     Dates: start: 20090507
  2. DIOVAN [Suspect]
     Dosage: 0.5 DF, QD
     Route: 048
     Dates: start: 20090511, end: 20090515
  3. DIOVAN [Suspect]
     Dates: start: 20090520
  4. GLIBENCLAMIDE [Concomitant]
     Indication: DIABETES MELLITUS
     Dosage: 5 MG, QD
     Route: 048
     Dates: start: 19930101
  5. AMLODIPINE BESILATE [Concomitant]
     Dosage: 5 MG, QD
     Route: 048
     Dates: start: 19990101
  6. INDAPEN                                 /TUR/ [Concomitant]
  7. VASOGARD [Concomitant]
     Indication: PAIN IN EXTREMITY
     Dosage: 1 DF, BID
     Route: 048
  8. AAS [Concomitant]
     Dosage: 2 TABLTES AFTER LUNCH
     Route: 048

REACTIONS (6)
  - BLOOD PRESSURE FLUCTUATION [None]
  - CHEST PAIN [None]
  - FEELING ABNORMAL [None]
  - HYPOTENSION [None]
  - MALAISE [None]
  - SOMNOLENCE [None]
